FAERS Safety Report 25192110 (Version 1)
Quarter: 2025Q2

REPORT INFORMATION
  Report Type: Spontaneous
  Country: US (occurrence: None)
  Receive Date: 20250410
  Receipt Date: 20250410
  Transmission Date: 20250716
  Serious: No
  Sender: FDA-CTU
  Company Number: None

PATIENT
  Age: 54 Year
  Sex: Male

DRUGS (2)
  1. GAMUNEX-C [Suspect]
     Active Substance: HUMAN IMMUNOGLOBULIN G
     Dosage: 75 GM EVERY 4 WEEKS  ?
  2. Gamunex-C 10% [Concomitant]
     Dosage: FREQUENCY : MONTHLY;?

REACTIONS (2)
  - Pyrexia [None]
  - Infusion related reaction [None]

NARRATIVE: CASE EVENT DATE: 20250410
